FAERS Safety Report 24741462 (Version 1)
Quarter: 2024Q4

REPORT INFORMATION
  Report Type: Spontaneous
  Country: CH (occurrence: CH)
  Receive Date: 20241217
  Receipt Date: 20241217
  Transmission Date: 20250115
  Serious: Yes (Hospitalization)
  Sender: ROCHE
  Company Number: None

PATIENT
  Age: 34 Year
  Sex: Male

DRUGS (3)
  1. OCREVUS [Suspect]
     Active Substance: OCRELIZUMAB
     Indication: Multiple sclerosis
     Dosage: 12TH CYCLE ON APRIL 5TH, 2024
     Route: 042
     Dates: start: 201805, end: 20240405
  2. MIRABEGRON [Concomitant]
     Active Substance: MIRABEGRON
     Indication: Micturition disorder
     Dosage: 0-0-50 MG-0, NACH KURZER PAUSE DURCHGEHEND SEIT 2018
     Route: 048
     Dates: start: 201505
  3. TOVIAZ [Concomitant]
     Active Substance: FESOTERODINE FUMARATE
     Indication: Micturition disorder
     Dosage: 0-0-8 MG-0, NACH KURZER PAUSE DURCHGEHEND SEIT 2018
     Route: 048
     Dates: start: 201604

REACTIONS (2)
  - Neutropenia [Recovered/Resolved]
  - Agranulocytosis [Recovered/Resolved]

NARRATIVE: CASE EVENT DATE: 20241029
